FAERS Safety Report 6161070-6 (Version None)
Quarter: 2009Q2

REPORT INFORMATION
  Report Type: 
  Country: None (occurrence: None)
  Receive Date: 20090420
  Receipt Date: 20090410
  Transmission Date: 20091009
  Serious: Yes (Hospitalization, Other)
  Sender: FDA-Public Use
  Company Number: US-PFIZER INC-2009190561

PATIENT
  Sex: Female
  Weight: 211.79 kg

DRUGS (15)
  1. NAPROXEN [Suspect]
     Indication: OSTEOARTHRITIS
     Dosage: UNK
     Route: 048
     Dates: start: 20080819, end: 20090214
  2. BLINDED *PLACEBO [Suspect]
     Indication: OSTEOARTHRITIS
     Dosage: UNK
     Route: 048
     Dates: start: 20080819, end: 20090214
  3. BLINDED CELECOXIB [Suspect]
     Indication: OSTEOARTHRITIS
     Dosage: UNK
     Route: 048
     Dates: start: 20080819, end: 20090214
  4. IBUPROFEN [Suspect]
     Indication: OSTEOARTHRITIS
     Dosage: UNK
     Route: 048
     Dates: start: 20080819, end: 20090214
  5. NAPROXEN [Suspect]
     Dosage: UNK
     Route: 048
     Dates: start: 20080819, end: 20090214
  6. ADVAIR HFA [Concomitant]
     Indication: ASTHMA
     Dosage: 100/60
     Dates: start: 20010101
  7. LEVOXYL [Concomitant]
     Indication: HYPOTHYROIDISM
     Dosage: 25 UG, 1X/DAY
     Dates: start: 20071101
  8. NIASPAN [Concomitant]
     Indication: HYPERCHOLESTEROLAEMIA
     Dosage: 500 MG, 2X/DAY
     Dates: start: 20071101
  9. PROMETRIUM [Concomitant]
     Indication: MENOPAUSE
     Dosage: 200 MG, 1X/DAY
     Dates: start: 20060201
  10. FLUTICASONE [Concomitant]
     Indication: HYPERSENSITIVITY
     Dosage: 50 UG, PRN
     Dates: start: 20050101
  11. MULTI-VITAMINS [Concomitant]
     Indication: SUPPLEMENTATION THERAPY
     Dosage: 1 TAB
     Dates: start: 20080601
  12. CALCIUM [Concomitant]
     Indication: SUPPLEMENTATION THERAPY
     Dosage: 1 TAB
     Dates: start: 19950101
  13. ECHINACEA [Concomitant]
     Indication: SUPPLEMENTATION THERAPY
     Dosage: 25 MG, 1X/DAY
     Dates: start: 20080926
  14. HORSE CHESTNUT EXTRACT [Concomitant]
     Indication: SUPPLEMENTATION THERAPY
     Dosage: 50 MG, 2X/DAY
     Dates: start: 20080915
  15. CHONDROITIN/GLUCOSAMINE [Concomitant]
     Indication: SUPPLEMENTATION THERAPY
     Dosage: 1500MG/1200MG
     Dates: start: 20080926

REACTIONS (4)
  - FEELING HOT [None]
  - FIBRIN D DIMER INCREASED [None]
  - HYPOAESTHESIA [None]
  - PARAESTHESIA [None]
